FAERS Safety Report 7769022-7 (Version None)
Quarter: 2011Q3

REPORT INFORMATION
  Report Type: 
  Country: None (occurrence: None)
  Receive Date: 20110922
  Receipt Date: 20110302
  Transmission Date: 20111222
  Serious: No
  Sender: FDA-Public Use
  Company Number: US-ASTRAZENECA-2011SE11812

PATIENT
  Age: 60 Year
  Sex: Female

DRUGS (2)
  1. SEROQUEL XR [Suspect]
     Indication: SLEEP DISORDER
     Route: 048
     Dates: start: 19980101, end: 20110224
  2. SEROQUEL XR [Suspect]
     Indication: BIPOLAR DISORDER
     Route: 048
     Dates: start: 19980101, end: 20110224

REACTIONS (9)
  - NAUSEA [None]
  - MIGRAINE [None]
  - BONE PAIN [None]
  - TREMOR [None]
  - NECK PAIN [None]
  - VOMITING [None]
  - MUSCLE SPASMS [None]
  - MUSCULAR WEAKNESS [None]
  - DRUG WITHDRAWAL SYNDROME [None]
